FAERS Safety Report 8538852 (Version 5)
Quarter: 2013Q3

REPORT INFORMATION
  Report Type: Spontaneous
  Country: US (occurrence: US)
  Receive Date: 20120501
  Receipt Date: 20130820
  Transmission Date: 20140515
  Serious: Yes (Hospitalization, Other)
  Sender: FDA-Public Use
  Company Number: US-ELI_LILLY_AND_COMPANY-US201204007970

PATIENT
  Age: 60 Year
  Sex: Female
  Weight: 54.88 kg

DRUGS (11)
  1. CYMBALTA [Suspect]
     Indication: DEPRESSION
     Dosage: 30 MG, QD
     Dates: start: 201104
  2. CYMBALTA [Suspect]
     Dosage: 60 MG, QD
     Dates: end: 201112
  3. SINGULAR [Concomitant]
     Indication: HYPERSENSITIVITY
  4. ACIPHEX [Concomitant]
  5. METOZOLV [Concomitant]
  6. DEXTROAMPHETAMINE [Concomitant]
     Indication: ATTENTION DEFICIT/HYPERACTIVITY DISORDER
  7. XANAX [Concomitant]
  8. ASMANEX [Concomitant]
  9. ALBUTEROL [Concomitant]
     Dosage: UNK, PRN
  10. ZANTAC [Concomitant]
  11. TUMS                               /00193601/ [Concomitant]

REACTIONS (42)
  - Hepatic fibrosis [Unknown]
  - Cholecystitis [Unknown]
  - Cholestasis [Unknown]
  - Chromaturia [Unknown]
  - Jaundice [Unknown]
  - Blood urea increased [Unknown]
  - Pruritus [Unknown]
  - Abdominal pain upper [Recovering/Resolving]
  - Blood bilirubin increased [Unknown]
  - Pancreatitis acute [Unknown]
  - Abdominal distension [Unknown]
  - Large intestine polyp [Unknown]
  - Dyspepsia [Unknown]
  - Constipation [Unknown]
  - Nausea [Not Recovered/Not Resolved]
  - Dyspepsia [Unknown]
  - Weight increased [Recovering/Resolving]
  - Abdominal pain [Not Recovered/Not Resolved]
  - Vomiting [Unknown]
  - Abnormal faeces [Unknown]
  - Gastritis [Unknown]
  - Gastrointestinal inflammation [Unknown]
  - Hiatus hernia [Unknown]
  - Oral discomfort [Unknown]
  - Oral mucosal blistering [Not Recovered/Not Resolved]
  - Dysphagia [Not Recovered/Not Resolved]
  - Skin odour abnormal [Not Recovered/Not Resolved]
  - Flatulence [Unknown]
  - Aphagia [Unknown]
  - Cholelithiasis [Recovering/Resolving]
  - Intentional drug misuse [Recovered/Resolved]
  - Mental disorder [Unknown]
  - Focal nodular hyperplasia [Unknown]
  - Hepatic cirrhosis [Unknown]
  - Blood glucose increased [Recovering/Resolving]
  - Upper-airway cough syndrome [Unknown]
  - Chest pain [Not Recovered/Not Resolved]
  - Pain [Unknown]
  - Dysgeusia [Unknown]
  - Dyspnoea [Unknown]
  - Stress [Unknown]
  - Mobility decreased [Unknown]
